FAERS Safety Report 7219406-0 (Version None)
Quarter: 2011Q1

REPORT INFORMATION
  Report Type: 
  Country: None (occurrence: None)
  Receive Date: 20110111
  Receipt Date: 20110106
  Transmission Date: 20110831
  Serious: No
  Sender: FDA-Public Use
  Company Number: US-PFIZER INC-2011004155

PATIENT
  Sex: Female

DRUGS (2)
  1. SERTRALINE HYDROCHLORIDE [Suspect]
     Dosage: 2.5 ML, 1X/DAY
  2. SERTRALINE HYDROCHLORIDE [Suspect]
     Dosage: 1 ML, 1X/DAY
     Route: 048
     Dates: start: 20101001

REACTIONS (1)
  - DYSGEUSIA [None]
